FAERS Safety Report 17361110 (Version 1)
Quarter: 2020Q1

REPORT INFORMATION
  Report Type: Spontaneous
  Country: US (occurrence: US)
  Receive Date: 20200203
  Receipt Date: 20200203
  Transmission Date: 20200409
  Serious: No
  Sender: FDA-Public Use
  Company Number: US-SA-2020SA027182

PATIENT
  Age: 67 Year
  Sex: Male

DRUGS (1)
  1. KEVZARA [Suspect]
     Active Substance: SARILUMAB
     Dosage: 200 MG, QOW
     Route: 058
     Dates: start: 202001

REACTIONS (5)
  - Dizziness [Unknown]
  - Drug ineffective [Unknown]
  - Pain in extremity [Unknown]
  - Diarrhoea [Unknown]
  - Dry mouth [Unknown]

NARRATIVE: CASE EVENT DATE: 202001
